FAERS Safety Report 23622997 (Version 1)
Quarter: 2024Q1

REPORT INFORMATION
  Report Type: Spontaneous
  Country: CN (occurrence: CN)
  Receive Date: 20240312
  Receipt Date: 20240312
  Transmission Date: 20240410
  Serious: Yes (Other)
  Sender: FDA-Public Use
  Company Number: CN-AMGEN-CHNSP2024047619

PATIENT

DRUGS (4)
  1. REPATHA [Suspect]
     Active Substance: EVOLOCUMAB
     Indication: Cerebral infarction
     Dosage: 140 MILLIGRAM, Q2WK/1 ML
     Route: 058
  2. REPATHA [Suspect]
     Active Substance: EVOLOCUMAB
     Dosage: 140 MILLIGRAM, Q2WK/1 ML
     Route: 058
  3. ALTEPLASE [Suspect]
     Active Substance: ALTEPLASE
     Indication: Cerebral infarction
     Dosage: STRENGTH OF 50 MILLIGRAM/VIAL
     Route: 042
  4. ALTEPLASE [Suspect]
     Active Substance: ALTEPLASE
     Dosage: STRENGTH OF 50 MILLIGRAM/VIAL
     Route: 042

REACTIONS (6)
  - Cerebral infarction [Unknown]
  - Hepatic function abnormal [Unknown]
  - Gingival bleeding [Unknown]
  - Pruritus [Unknown]
  - Drug ineffective [Unknown]
  - High density lipoprotein increased [Unknown]
